FAERS Safety Report 12828842 (Version 1)
Quarter: 2016Q4

REPORT INFORMATION
  Report Type: Spontaneous
  Country: US (occurrence: US)
  Receive Date: 20161007
  Receipt Date: 20161007
  Transmission Date: 20170207
  Serious: No
  Sender: FDA-Public Use
  Company Number: US-SA-2015SA166667

PATIENT
  Age: 57 Year
  Sex: Female

DRUGS (11)
  1. AMFETAMINE [Concomitant]
     Active Substance: AMPHETAMINE
  2. VITAMIN D3 [Concomitant]
     Active Substance: CHOLECALCIFEROL
  3. FISH OIL [Concomitant]
     Active Substance: FISH OIL
  4. AUBAGIO [Suspect]
     Active Substance: TERIFLUNOMIDE
     Indication: MULTIPLE SCLEROSIS
     Route: 048
     Dates: start: 201510
  5. BACLOFEN. [Concomitant]
     Active Substance: BACLOFEN
  6. TOPIRAMATE. [Concomitant]
     Active Substance: TOPIRAMATE
  7. CITRUCEL [Concomitant]
     Active Substance: METHYLCELLULOSE (4000 MPA.S)
  8. BUPROPION HYDROCHLORIDE. [Concomitant]
     Active Substance: BUPROPION HYDROCHLORIDE
  9. VITAMIN D/CALCIUM [Concomitant]
  10. OMEPRAZOLE. [Concomitant]
     Active Substance: OMEPRAZOLE
  11. PROAIR HFA [Concomitant]
     Active Substance: ALBUTEROL SULFATE

REACTIONS (12)
  - Decreased appetite [Unknown]
  - Hot flush [Unknown]
  - Dry skin [Unknown]
  - Decreased appetite [Unknown]
  - Bone pain [Unknown]
  - Emotional disorder [Unknown]
  - Condition aggravated [Unknown]
  - Depression [Unknown]
  - Irritability [Unknown]
  - Blood pressure increased [Unknown]
  - Weight decreased [Unknown]
  - Headache [Unknown]

NARRATIVE: CASE EVENT DATE: 2015
